FAERS Safety Report 9452757 (Version 2)
Quarter: 2013Q4

REPORT INFORMATION
  Report Type: Spontaneous
  Country: JP (occurrence: JP)
  Receive Date: 20130812
  Receipt Date: 20131217
  Transmission Date: 20140711
  Serious: Yes (Other)
  Sender: FDA-Public Use
  Company Number: PHHY2013JP085733

PATIENT
  Sex: 0

DRUGS (1)
  1. ZOMETA [Suspect]
     Dosage: 4 MG, PER ADMINISTRATION
     Route: 041

REACTIONS (1)
  - Osteonecrosis of jaw [Unknown]
